FAERS Safety Report 18833045 (Version 2)
Quarter: 2021Q4

REPORT INFORMATION
  Report Type: Spontaneous
  Country: US (occurrence: US)
  Receive Date: 20210201
  Receipt Date: 20211231
  Transmission Date: 20220303
  Serious: Yes (Hospitalization, Other)
  Sender: FDA-Public Use
  Company Number: US-AUROBINDO-AUR-APL-2021-003730

PATIENT
  Age: 5 Year
  Sex: Male

DRUGS (12)
  1. LIDOCAINE [Suspect]
     Active Substance: LIDOCAINE
     Indication: Epilepsy
     Dosage: UNK
     Route: 065
  2. LIDOCAINE [Suspect]
     Active Substance: LIDOCAINE
     Dosage: CONTINUOUS INFUSION
  3. LIDOCAINE [Suspect]
     Active Substance: LIDOCAINE
     Dosage: UNK
     Route: 065
  4. LIDOCAINE [Suspect]
     Active Substance: LIDOCAINE
     Dosage: UNK
     Route: 065
  5. LIDOCAINE [Suspect]
     Active Substance: LIDOCAINE
     Dosage: CONTINUOUS INFUSION
  6. LIDOCAINE [Suspect]
     Active Substance: LIDOCAINE
     Dosage: UNK
     Route: 042
  7. KETAMINE HYDROCHLORIDE [Suspect]
     Active Substance: KETAMINE HYDROCHLORIDE
     Indication: Epilepsy
     Dosage: UNK
     Route: 065
  8. ANAKINRA [Suspect]
     Active Substance: ANAKINRA
     Indication: Product used for unknown indication
     Dosage: 10 MILLIGRAM/KILOGRAM, DAILY
     Route: 065
  9. PENTOBARBITAL [Suspect]
     Active Substance: PENTOBARBITAL
     Indication: Product used for unknown indication
     Dosage: UNK
     Route: 065
  10. MIDAZOLAM [Suspect]
     Active Substance: MIDAZOLAM
     Indication: Product used for unknown indication
     Dosage: INJECTION
     Route: 065
  11. MIDAZOLAM [Suspect]
     Active Substance: MIDAZOLAM
     Dosage: UNK
  12. IMMUNE GLOBULIN NOS [Suspect]
     Active Substance: IMMUNE GLOBULIN NOS
     Indication: Febrile infection-related epilepsy syndrome
     Route: 042

REACTIONS (3)
  - Drug ineffective for unapproved indication [Unknown]
  - Cytopenia [Unknown]
  - Off label use [Unknown]
